FAERS Safety Report 7466987-8 (Version None)
Quarter: 2011Q2

REPORT INFORMATION
  Report Type: 
  Country: None (occurrence: None)
  Receive Date: 20110509
  Receipt Date: 20110325
  Transmission Date: 20111010
  Serious: Yes (Hospitalization, Other)
  Sender: FDA-Public Use
  Company Number: US-BAYER-201038022NA

PATIENT
  Sex: Female
  Weight: 102.4 kg

DRUGS (3)
  1. CYCLOBENZAPRINE [Concomitant]
  2. IBUPROFEN [Concomitant]
  3. YAZ [Suspect]
     Indication: PRODUCT USED FOR UNKNOWN INDICATION
     Route: 048
     Dates: start: 20080701, end: 20081001

REACTIONS (2)
  - PAIN [None]
  - PULMONARY EMBOLISM [None]
